FAERS Safety Report 4989146-7 (Version None)
Quarter: 2006Q2

REPORT INFORMATION
  Report Type: 
  Country: None (occurrence: None)
  Receive Date: 20060425
  Receipt Date: 20060413
  Transmission Date: 20061013
  Serious: Yes (Hospitalization, Other)
  Sender: FDA-Public Use
  Company Number: 2006051081

PATIENT
  Age: 63 Year
  Sex: Female
  Weight: 112.4921 kg

DRUGS (15)
  1. LIPITOR [Suspect]
     Indication: BLOOD CHOLESTEROL INCREASED
     Dosage: 80 MG (80 MG, 1 IN 1 D), ORAL
     Route: 048
     Dates: start: 19960101
  2. METOPROLOL TARTRATE [Concomitant]
  3. CLONIDINE [Concomitant]
  4. VASOTEC [Concomitant]
  5. DIOVAN [Concomitant]
  6. FUROSEMIDE [Concomitant]
  7. HUMALOG [Concomitant]
  8. LANTUS [Concomitant]
  9. ZETIA [Concomitant]
  10. ACETYLSALICYLIC ACID ENTERIC COATED (ACETYLSALICYLIC ACID) [Concomitant]
  11. NEXIUM [Concomitant]
  12. PROZAC [Concomitant]
  13. HYDROXYZINE [Concomitant]
  14. MULTIVITAMINS AND IRON [Concomitant]
  15. PHOSLO [Concomitant]

REACTIONS (5)
  - ABASIA [None]
  - ARTHRITIS [None]
  - BLOOD PRESSURE ABNORMAL [None]
  - CARDIAC DISORDER [None]
  - SPINAL FRACTURE [None]
